FAERS Safety Report 25801913 (Version 2)
Quarter: 2025Q4

REPORT INFORMATION
  Report Type: Spontaneous
  Country: JP (occurrence: JP)
  Receive Date: 20250915
  Receipt Date: 20251009
  Transmission Date: 20260117
  Serious: Yes (Death, Other)
  Sender: CHEPLAPHARM
  Company Number: JP-CHEPLA-2025010730

PATIENT
  Age: 83 Year
  Sex: Female

DRUGS (13)
  1. GANCICLOVIR [Suspect]
     Active Substance: GANCICLOVIR
     Indication: Cytomegalovirus colitis
     Dosage: DAY 8 AND CONTINUED UNTILE THE PATIENT^S DEATH ON DAY 28?DAILY DOSE: 100 MILLIGRAM
  2. METHOTREXATE [Suspect]
     Active Substance: METHOTREXATE
     Indication: Rheumatoid arthritis
  3. TACROLIMUS [Suspect]
     Active Substance: TACROLIMUS
     Indication: Rheumatoid arthritis
  4. METHYLPREDNISOLONE [Concomitant]
     Active Substance: METHYLPREDNISOLONE
     Indication: Liver injury
     Dosage: DAILY DOSE: 30 MILLIGRAM
  5. TENOFOVIR [Concomitant]
     Active Substance: TENOFOVIR
     Indication: Liver injury
  6. EDOXABAN [Concomitant]
     Active Substance: EDOXABAN
     Indication: Pulmonary embolism
  7. HYDROCORTISONE [Concomitant]
     Active Substance: HYDROCORTISONE
     Indication: Hypovolaemic shock
  8. HYDROCORTISONE [Concomitant]
     Active Substance: HYDROCORTISONE
     Indication: Septic shock
  9. CEFTAZIDIME [Concomitant]
     Active Substance: CEFTAZIDIME
     Indication: Hypovolaemic shock
     Route: 042
  10. CEFTAZIDIME [Concomitant]
     Active Substance: CEFTAZIDIME
     Indication: Septic shock
     Route: 042
  11. VANCOMYCIN [Concomitant]
     Active Substance: VANCOMYCIN
     Indication: Septic shock
     Route: 042
  12. VANCOMYCIN [Concomitant]
     Active Substance: VANCOMYCIN
     Indication: Hypovolaemic shock
     Route: 042
  13. MEROPENEM [Concomitant]
     Active Substance: MEROPENEM
     Indication: Enterobacter infection

REACTIONS (9)
  - Hepatic failure [Fatal]
  - Hyperbilirubinaemia [Unknown]
  - Ascites [Unknown]
  - Diverticulitis [Unknown]
  - Gastrointestinal perforation [Unknown]
  - Liver injury [Unknown]
  - Hepatitis B reactivation [Unknown]
  - Pyrexia [Unknown]
  - Pleural effusion [Unknown]
